FAERS Safety Report 6941075-5 (Version None)
Quarter: 2010Q3

REPORT INFORMATION
  Report Type: 
  Country: None (occurrence: None)
  Receive Date: 20100825
  Receipt Date: 20100818
  Transmission Date: 20110219
  Serious: Yes (Other)
  Sender: FDA-Public Use
  Company Number: US-BAYER-201018782BCC

PATIENT
  Age: 82 Year
  Sex: Male
  Weight: 91 kg

DRUGS (2)
  1. PHILLP'S CHEWABLE TABLETS [Suspect]
     Indication: CONSTIPATION
     Dosage: TOTAL DAILY DOSE: 6 DF  UNIT DOSE: 1 DF
     Route: 048
     Dates: start: 20060101, end: 20100801
  2. METAMUCIL-2 [Concomitant]

REACTIONS (3)
  - HAEMATOCHEZIA [None]
  - INTESTINAL ULCER [None]
  - NO ADVERSE EVENT [None]
